FAERS Safety Report 5593660-3 (Version None)
Quarter: 2008Q1

REPORT INFORMATION
  Report Type: 
  Country: None (occurrence: None)
  Receive Date: 20080116
  Receipt Date: 20070131
  Transmission Date: 20080703
  Serious: No
  Sender: FDA-Public Use
  Company Number: US-ABBOTT-07P-163-0358119-00

PATIENT
  Sex: Male
  Weight: 30.418 kg

DRUGS (2)
  1. BIAXIN [Suspect]
     Indication: PHARYNGITIS STREPTOCOCCAL
     Route: 048
     Dates: start: 20070112, end: 20070113
  2. RITALIN-SR [Concomitant]
     Indication: ATTENTION DEFICIT/HYPERACTIVITY DISORDER
     Route: 048
     Dates: start: 20030101

REACTIONS (2)
  - DYSGEUSIA [None]
  - PHARYNGEAL HYPOAESTHESIA [None]
